FAERS Safety Report 7677897-5 (Version None)
Quarter: 2011Q3

REPORT INFORMATION
  Report Type: 
  Country: None (occurrence: None)
  Receive Date: 20110811
  Receipt Date: 20110809
  Transmission Date: 20111222
  Serious: Yes (Disabling)
  Sender: FDA-Public Use
  Company Number: NO-MERCK-1107USA03483

PATIENT
  Age: 66 Year
  Sex: Female

DRUGS (1)
  1. FOSAMAX [Suspect]
     Indication: OSTEOPOROSIS
     Route: 048
     Dates: start: 19910101

REACTIONS (3)
  - ORAL DISCOMFORT [None]
  - TOOTH LOSS [None]
  - MASTICATION DISORDER [None]
